FAERS Safety Report 8556289 (Version 2)
Quarter: 2013Q1

REPORT INFORMATION
  Report Type: Spontaneous
  Country: CA (occurrence: None)
  Receive Date: 20120504
  Receipt Date: 20121016
  Transmission Date: 20140127
  Serious: Yes (Hospitalization, Other)
  Sender: FDA-Public Use
  Company Number: 2012US006410

PATIENT
  Age: 65 Year
  Sex: Male
  Weight: 78.8 kg

DRUGS (2)
  1. ALOXI [Suspect]
     Dosage: SINGLE
     Route: 048
     Dates: start: 20120322, end: 20120322
  2. PALONOSETRON [Suspect]
     Dosage: SINGLE
     Route: 048
     Dates: start: 20120223, end: 20120223

REACTIONS (5)
  - GASTRIC HAEMORRHAGE [None]
  - MELAENA [None]
  - ECCHYMOSIS [None]
  - IDIOPATHIC THROMBOCYTOPENIC PURPURA [None]
  - CONTUSION [None]
